FAERS Safety Report 12403456 (Version 1)
Quarter: 2016Q2

REPORT INFORMATION
  Report Type: Spontaneous
  Country: US (occurrence: US)
  Receive Date: 20160525
  Receipt Date: 20160525
  Transmission Date: 20160815
  Serious: No
  Sender: FDA-Public Use
  Company Number: US-JAZZ-2015-US-015158

PATIENT
  Sex: Female

DRUGS (25)
  1. HUMIRA [Concomitant]
     Active Substance: ADALIMUMAB
  2. CALCIUM [Concomitant]
     Active Substance: CALCIUM
  3. PERCODAN [Concomitant]
     Active Substance: ASPIRIN\OXYCODONE HYDROCHLORIDE
  4. VITAMIN C [Concomitant]
     Active Substance: ASCORBIC ACID
  5. XARELTO [Concomitant]
     Active Substance: RIVAROXABAN
  6. XYREM [Suspect]
     Active Substance: SODIUM OXYBATE
     Indication: HYPERSOMNIA
     Dosage: 3 G, BID
     Route: 048
     Dates: start: 201001, end: 201002
  7. BYSTOLIC [Concomitant]
     Active Substance: NEBIVOLOL HYDROCHLORIDE
  8. SOMA [Concomitant]
     Active Substance: CARISOPRODOL
  9. METHADONE HCL [Concomitant]
     Active Substance: METHADONE HYDROCHLORIDE
  10. OXYCODONE HYDROCHLORIDE. [Concomitant]
     Active Substance: OXYCODONE HYDROCHLORIDE
  11. ZINC [Concomitant]
     Active Substance: ZINC\ZINC CHLORIDE
  12. ORENCIA [Concomitant]
     Active Substance: ABATACEPT
  13. RESTORIL [Concomitant]
     Active Substance: TEMAZEPAM
  14. XANAX XR [Concomitant]
     Active Substance: ALPRAZOLAM
  15. XYREM [Suspect]
     Active Substance: SODIUM OXYBATE
     Dosage: DOSE ADJUSTMENTS
     Route: 048
  16. FISH OIL [Concomitant]
     Active Substance: FISH OIL
  17. LYRICA [Concomitant]
     Active Substance: PREGABALIN
  18. LISINOPRIL. [Concomitant]
     Active Substance: LISINOPRIL
  19. BUTALBITAL COMPOUND [Concomitant]
     Active Substance: ASPIRIN\BUTALBITAL\CAFFEINE
  20. XYREM [Suspect]
     Active Substance: SODIUM OXYBATE
     Dosage: 4.5 G, BID
     Route: 048
     Dates: start: 201509
  21. FOSAMAX [Concomitant]
     Active Substance: ALENDRONATE SODIUM
  22. IMITREX [Concomitant]
     Active Substance: SUMATRIPTAN SUCCINATE
  23. TOPAMAX [Concomitant]
     Active Substance: TOPIRAMATE
  24. COMPAZINE [Concomitant]
     Active Substance: PROCHLORPERAZINE MALEATE
  25. ZOLPIDEM TARTRATE. [Concomitant]
     Active Substance: ZOLPIDEM TARTRATE

REACTIONS (2)
  - Pain [Recovering/Resolving]
  - Hypertension [Recovering/Resolving]
